FAERS Safety Report 5322115-6 (Version None)
Quarter: 2007Q1

REPORT INFORMATION
  Report Type: 
  Country: None (occurrence: None)
  Receive Date: 20070222
  Receipt Date: 20061026
  Transmission Date: 20070707
  Serious: Yes (Other)
  Sender: FDA-Public Use
  Company Number: HQWYE646526OCT06

PATIENT
  Age: 57 Year
  Sex: Female

DRUGS (5)
  1. EFFEXOR [Suspect]
     Indication: DEPRESSION
     Dosage: 375 MG 1X PER 1 DAY; ORAL
     Route: 048
     Dates: start: 20020101, end: 20060601
  2. BUSPAR [Suspect]
     Indication: DEPRESSION
     Dosage: 120 MG 1X PER 1 DAY; ORAL
     Route: 048
     Dates: start: 20020101, end: 20060601
  3. FLUOXETINE [Suspect]
     Indication: DEPRESSION
     Dosage: 40 MG 1X PER 1 DAY; ORAL
     Route: 048
     Dates: start: 20020101, end: 20060601
  4. KEPPRA [Suspect]
     Indication: CONVULSION
     Dosage: 500 MG 2X PER 1 DAY; ORAL
     Route: 048
     Dates: start: 20060401
  5. WELLBUTRIN [Suspect]
     Indication: DEPRESSION
     Dosage: 450 MG 1X PER 1 DAY; ORAL
     Route: 048
     Dates: start: 20020101, end: 20060401

REACTIONS (1)
  - CONVULSION [None]
